FAERS Safety Report 6642879-9 (Version None)
Quarter: 2010Q1

REPORT INFORMATION
  Report Type: 
  Country: None (occurrence: None)
  Receive Date: 20100319
  Receipt Date: 20100305
  Transmission Date: 20100710
  Serious: Yes (Other)
  Sender: FDA-Public Use
  Company Number: US-ELI_LILLY_AND_COMPANY-US201003002700

PATIENT
  Age: 42 Year
  Sex: Male
  Weight: 113.38 kg

DRUGS (2)
  1. EFFIENT [Suspect]
     Indication: PERCUTANEOUS CORONARY INTERVENTION
     Dosage: 10 MG, UNK
  2. ASPIRIN [Concomitant]

REACTIONS (3)
  - FALL [None]
  - HEAD INJURY [None]
  - SUBDURAL HAEMATOMA [None]
